FAERS Safety Report 8174695-3 (Version None)
Quarter: 2012Q1

REPORT INFORMATION
  Report Type: 
  Country: None (occurrence: None)
  Receive Date: 20120229
  Receipt Date: 20120224
  Transmission Date: 20120608
  Serious: Yes (Other)
  Sender: FDA-Public Use
  Company Number: US-GLAXOSMITHKLINE-A0959898A

PATIENT
  Sex: Female

DRUGS (1)
  1. FLOVENT [Suspect]
     Dosage: 2PUFF PER DAY
     Route: 065
     Dates: start: 20111001

REACTIONS (3)
  - MENTAL DISORDER [None]
  - AGGRESSION [None]
  - ABNORMAL BEHAVIOUR [None]
